FAERS Safety Report 21225295 (Version 5)
Quarter: 2023Q1

REPORT INFORMATION
  Report Type: Spontaneous
  Country: JP (occurrence: JP)
  Receive Date: 20220817
  Receipt Date: 20230323
  Transmission Date: 20230418
  Serious: Yes (Other)
  Sender: FDA-Public Use
  Company Number: JP-BEH-2022148534

PATIENT
  Age: 14 Year
  Sex: Female
  Weight: 46.8 kg

DRUGS (4)
  1. HIZENTRA [Suspect]
     Active Substance: HUMAN IMMUNOGLOBULIN G
     Indication: Chronic inflammatory demyelinating polyradiculoneuropathy
     Dosage: 16 GRAM, SINGLE, MAXIMUM IV INFUSION RATE (ML/HR) OR SC INFUSION RATE FOR ALL SITES IN TOTAL (ML/HR)
     Route: 058
     Dates: start: 20220804, end: 20220804
  2. HIZENTRA [Suspect]
     Active Substance: HUMAN IMMUNOGLOBULIN G
     Dosage: 0.2 MILLIGRAM/KILOGRAM
     Route: 058
     Dates: start: 20220812
  3. HIZENTRA [Suspect]
     Active Substance: HUMAN IMMUNOGLOBULIN G
     Dosage: 350 MILLIGRAM/KILOGRAM
     Route: 058
  4. HIZENTRA [Suspect]
     Active Substance: HUMAN IMMUNOGLOBULIN G
     Dosage: 200 MILLIGRAM/KILOGRAM, QW
     Route: 058

REACTIONS (4)
  - Meningitis aseptic [Recovered/Resolved]
  - Pyrexia [Recovered/Resolved]
  - Headache [Recovered/Resolved]
  - Pain [Unknown]

NARRATIVE: CASE EVENT DATE: 20220808
